FAERS Safety Report 5411911-2 (Version None)
Quarter: 2007Q3

REPORT INFORMATION
  Report Type: 
  Country: None (occurrence: None)
  Receive Date: 20070810
  Receipt Date: 20070810
  Transmission Date: 20080115
  Serious: No
  Sender: FDA-Public Use
  Company Number: None

PATIENT
  Sex: Female
  Weight: 72.5755 kg

DRUGS (1)
  1. OXYCONTIN [Suspect]
     Dosage: 40MG 1 PO BID 1 PO BID PO
     Route: 048
     Dates: start: 20060901

REACTIONS (1)
  - DRUG INEFFECTIVE [None]
